FAERS Safety Report 10582348 (Version 1)
Quarter: 2014Q4

REPORT INFORMATION
  Report Type: Report from Study
  Country: IT (occurrence: IT)
  Receive Date: 20141113
  Receipt Date: 20141113
  Transmission Date: 20150529
  Serious: Yes (Life-Threatening, Hospitalization)
  Sender: FDA-Public Use
  Company Number: IT-TEVA-521298ISR

PATIENT
  Age: 75 Year
  Sex: Female

DRUGS (4)
  1. CICLOFOSFAMIDE [Suspect]
     Active Substance: CYCLOPHOSPHAMIDE
     Indication: BREAST CANCER METASTATIC
     Route: 042
     Dates: start: 20140722, end: 20140722
  2. TACHIPIRINA [Concomitant]
     Active Substance: ACETAMINOPHEN
     Dates: start: 20140715, end: 20140721
  3. MYOCET [Suspect]
     Active Substance: DOXORUBICIN
     Indication: BREAST CANCER METASTATIC
     Route: 042
     Dates: start: 20140722, end: 20140722
  4. METFORMIN [Suspect]
     Active Substance: METFORMIN HYDROCHLORIDE
     Indication: BREAST CANCER METASTATIC
     Route: 048
     Dates: start: 20140709

REACTIONS (2)
  - Neutropenia [Not Recovered/Not Resolved]
  - Anaemia [Not Recovered/Not Resolved]

NARRATIVE: CASE EVENT DATE: 20140804
